FAERS Safety Report 6433201-1 (Version None)
Quarter: 2009Q4

REPORT INFORMATION
  Report Type: 
  Country: None (occurrence: None)
  Receive Date: 20091109
  Receipt Date: 20091103
  Transmission Date: 20100525
  Serious: Yes (Death, Hospitalization, Other)
  Sender: FDA-Public Use
  Company Number: PHHY2009CA39709

PATIENT
  Sex: Female

DRUGS (1)
  1. FEMARA [Suspect]
     Indication: ENDOMETRIAL CANCER
     Dosage: UNK
     Route: 048
     Dates: start: 20081001, end: 20090801

REACTIONS (5)
  - ENDOMETRIAL CANCER RECURRENT [None]
  - HYPOPHAGIA [None]
  - MALIGNANT NEOPLASM PROGRESSION [None]
  - PAIN [None]
  - VOMITING [None]
